FAERS Safety Report 25497542 (Version 1)
Quarter: 2025Q3

REPORT INFORMATION
  Report Type: Spontaneous
  Country: IN (occurrence: IN)
  Receive Date: 20250701
  Receipt Date: 20250701
  Transmission Date: 20251020
  Serious: Yes (Death, Hospitalization)
  Sender: CHEPLAPHARM
  Company Number: IN-CHEPLA-2025007992

PATIENT
  Age: 25 Year
  Sex: Male

DRUGS (2)
  1. GANCICLOVIR [Suspect]
     Active Substance: GANCICLOVIR
     Indication: Cytomegalovirus chorioretinitis
     Dosage: 2MG/0.04 ML
     Route: 031
  2. VALGANCICLOVIR [Suspect]
     Active Substance: VALGANCICLOVIR
     Indication: Cytomegalovirus chorioretinitis
     Route: 048

REACTIONS (6)
  - Multiple organ dysfunction syndrome [Fatal]
  - Disseminated intravascular coagulation [Fatal]
  - Sepsis [Unknown]
  - Dystrophic calcification [Unknown]
  - Off label use [Recovered/Resolved]
  - Off label use [Recovered/Resolved]
